FAERS Safety Report 10168017 (Version 1)
Quarter: 2014Q2

REPORT INFORMATION
  Report Type: Spontaneous
  Country: US (occurrence: US)
  Receive Date: 20140512
  Receipt Date: 20140512
  Transmission Date: 20141212
  Serious: Yes (Other)
  Sender: FDA-Public Use
  Company Number: US-TEVA-480289USA

PATIENT
  Age: 6 Decade
  Sex: Female

DRUGS (3)
  1. IRINOTECAN [Suspect]
     Indication: COLORECTAL CANCER METASTATIC
     Dosage: 180 MG/M2 [340MG] OVER 90 MINUTES
     Route: 065
  2. BEVACIZUMAB [Concomitant]
     Indication: COLORECTAL CANCER METASTATIC
     Dosage: ADMIN. OVER 90 MIN
     Route: 065
  3. FOLINIC ACID [Concomitant]
     Indication: COLORECTAL CANCER METASTATIC
     Dosage: ADMIN. OVER 120 MIN
     Route: 065

REACTIONS (3)
  - Immune thrombocytopenic purpura [Recovered/Resolved]
  - Metastases to lung [None]
  - Sinus tachycardia [None]
